FAERS Safety Report 20304820 (Version 2)
Quarter: 2022Q1

REPORT INFORMATION
  Report Type: Spontaneous
  Country: DE (occurrence: DE)
  Receive Date: 20220106
  Receipt Date: 20220112
  Transmission Date: 20220424
  Serious: Yes (Other)
  Sender: FDA-Public Use
  Company Number: DE-BRISTOL-MYERS SQUIBB COMPANY-BMS-2021-136835

PATIENT
  Age: 51 Year
  Sex: Female

DRUGS (2)
  1. APIXABAN [Suspect]
     Active Substance: APIXABAN
     Indication: Embolism venous
     Dosage: 10 MILLIGRAM, QD (5 MILLIGRAM, BID)
     Route: 065
     Dates: end: 20211211
  2. APIXABAN [Suspect]
     Active Substance: APIXABAN
     Indication: Factor V Leiden mutation
     Dosage: 5 MILLIGRAM, QD, (2.5 MILLIGRAM, BID)
     Route: 065

REACTIONS (7)
  - Thrombocytopenia [Unknown]
  - Dysphagia [Unknown]
  - Microembolism [Unknown]
  - Procedural haemorrhage [Unknown]
  - Drug level increased [Unknown]
  - Factor Xa activity increased [Unknown]
  - Treatment noncompliance [Unknown]
